FAERS Safety Report 9628735 (Version 3)
Quarter: 2013Q4

REPORT INFORMATION
  Report Type: Spontaneous
  Country: SE (occurrence: SE)
  Receive Date: 20131017
  Receipt Date: 20131028
  Transmission Date: 20140711
  Serious: Yes (Hospitalization)
  Sender: FDA-Public Use
  Company Number: SE-JNJFOC-20131006865

PATIENT
  Age: 19 Year
  Sex: Female
  Weight: 52 kg

DRUGS (5)
  1. REMICADE [Suspect]
     Indication: CROHN^S DISEASE
     Route: 042
     Dates: start: 20130827
  2. REMICADE [Suspect]
     Indication: CROHN^S DISEASE
     Dosage: THIRD DOSE
     Route: 042
     Dates: start: 20131009, end: 20131010
  3. SOLU CORTEF [Concomitant]
     Indication: PREMEDICATION
     Route: 065
     Dates: start: 20131010
  4. ASACOL [Concomitant]
     Indication: RENAL DISORDER
     Route: 065
  5. AZATHIOPRINE [Concomitant]
     Route: 065

REACTIONS (15)
  - Hypotension [Recovered/Resolved]
  - Paraesthesia oral [Recovered/Resolved]
  - Oxygen saturation decreased [Recovered/Resolved]
  - Flushing [Recovered/Resolved]
  - Chest discomfort [Recovered/Resolved]
  - Swollen tongue [Recovered/Resolved]
  - Paraesthesia [Recovered/Resolved]
  - Infusion related reaction [Recovered/Resolved]
  - Face oedema [Recovered/Resolved]
  - Laryngeal oedema [Recovered/Resolved]
  - Dyspnoea [Recovered/Resolved]
  - Fatigue [Recovered/Resolved]
  - Bradycardia [Recovered/Resolved]
  - Rash [Recovered/Resolved]
  - Vomiting [Recovered/Resolved]
